FAERS Safety Report 9535553 (Version 1)
Quarter: 2013Q3

REPORT INFORMATION
  Report Type: Spontaneous
  Country: US (occurrence: US)
  Receive Date: 20130919
  Receipt Date: 20130919
  Transmission Date: 20140515
  Serious: Yes (Hospitalization, Other)
  Sender: FDA-Public Use
  Company Number: US-JNJFOC-20130909837

PATIENT
  Sex: Female

DRUGS (4)
  1. BABY ASPIRIN [Suspect]
     Indication: PRODUCT USED FOR UNKNOWN INDICATION
     Route: 065
  2. COUMADIN [Interacting]
     Indication: PRODUCT USED FOR UNKNOWN INDICATION
  3. SYNTHROID [Suspect]
     Indication: THYROID HORMONE REPLACEMENT THERAPY
     Route: 065
     Dates: start: 201303
  4. BENADRYL [Concomitant]
     Indication: URTICARIA
     Route: 065

REACTIONS (6)
  - Drug interaction [Unknown]
  - Hypersensitivity [Unknown]
  - Decreased appetite [Unknown]
  - Gastritis erosive [Unknown]
  - Nausea [Unknown]
  - Dehydration [Unknown]
